FAERS Safety Report 6841142-0 (Version None)
Quarter: 2010Q3

REPORT INFORMATION
  Report Type: 
  Country: None (occurrence: None)
  Receive Date: 20100714
  Receipt Date: 20070627
  Transmission Date: 20110219
  Serious: No
  Sender: FDA-Public Use
  Company Number: US-PFIZER INC-2007054783

PATIENT
  Sex: Female
  Weight: 60.9 kg

DRUGS (4)
  1. CHANTIX [Suspect]
     Indication: SMOKING CESSATION THERAPY
     Dates: start: 20070614
  2. EFFEXOR [Concomitant]
  3. PROPRANOLOL [Concomitant]
  4. CRESTOR [Concomitant]

REACTIONS (6)
  - ANXIETY [None]
  - ILL-DEFINED DISORDER [None]
  - INSOMNIA [None]
  - MENTAL DISORDER [None]
  - NERVOUSNESS [None]
  - TENSION [None]
